FAERS Safety Report 9646349 (Version 3)
Quarter: 2013Q4

REPORT INFORMATION
  Report Type: Spontaneous
  Country: AT (occurrence: AT)
  Receive Date: 20131025
  Receipt Date: 20131210
  Transmission Date: 20140711
  Serious: Yes (Hospitalization, Other)
  Sender: FDA-Public Use
  Company Number: AT-ASTRAZENECA-2013SE75848

PATIENT
  Age: 21 Year
  Sex: Male

DRUGS (25)
  1. NEXIUM [Suspect]
     Route: 048
     Dates: start: 20130613, end: 20130630
  2. XEPLION [Suspect]
     Route: 030
     Dates: start: 20130523
  3. XEPLION [Suspect]
     Route: 030
     Dates: start: 20130530
  4. XEPLION [Suspect]
     Route: 030
     Dates: start: 20130627
  5. CISORDINOL [Suspect]
     Route: 030
     Dates: start: 20130514
  6. SELEXID [Concomitant]
     Dosage: 1200 MG DAILY DOSE
     Dates: start: 20130619, end: 20130630
  7. CATAPRESSAN [Concomitant]
     Dosage: 0.45 MG DAILY DOSE
     Dates: start: 20130613, end: 20130617
  8. CATAPRESSAN [Concomitant]
     Dosage: 0.37  MG DAILY DOSE
     Dates: start: 20130618, end: 20130619
  9. CATAPRESSAN [Concomitant]
     Dosage: 0.3  MG DAILY DOSE
     Dates: start: 20130620, end: 20130624
  10. CATAPRESSAN [Concomitant]
     Dosage: 0.15  MG DAILY DOSE
     Dates: start: 20130625, end: 20130627
  11. RIVOTRIL [Concomitant]
     Dosage: DAILY DOSE 5
     Dates: start: 20130615, end: 20130616
  12. RIVOTRIL [Concomitant]
     Dosage: DAILY DOSE 3
     Dates: start: 20130617, end: 20130618
  13. RIVOTRIL [Concomitant]
     Dosage: DAILY DOSE 2
     Dates: start: 20130619, end: 20130704
  14. RIVOTRIL [Concomitant]
     Dosage: DAILY DOSE 1
     Dates: start: 20130705, end: 20130711
  15. SYCREST [Concomitant]
     Dosage: DAILY DOSE 20
     Dates: start: 20130531
  16. QUILONOM RETARD [Concomitant]
     Dosage: 1350 MG
     Dates: start: 20130621, end: 20130721
  17. QUILONOM RETARD [Concomitant]
     Dosage: 1800 MG
     Dates: start: 20130722
  18. UNACYN [Concomitant]
     Dosage: 3G 1X1
     Route: 042
     Dates: start: 20130517
  19. UNACYN [Concomitant]
     Dosage: 2X1
     Route: 042
     Dates: start: 20130518
  20. UNACYN [Concomitant]
     Dosage: 3G 1X1
     Route: 042
     Dates: start: 20130519
  21. UNACYN [Concomitant]
     Route: 048
     Dates: start: 20130519
  22. UNACYN [Concomitant]
     Route: 048
     Dates: start: 20130520, end: 20130526
  23. UNACYN [Concomitant]
     Route: 048
     Dates: start: 20130527
  24. REFOBACIN AUGEN [Concomitant]
     Dosage: GTT 4X/DAY
     Dates: start: 20130607, end: 20130617
  25. ANTIBIOTICS [Concomitant]

REACTIONS (5)
  - Pyrexia [Recovered/Resolved]
  - Extrapyramidal disorder [Recovered/Resolved]
  - Salivary hypersecretion [Recovered/Resolved]
  - Injection site abscess [Recovered/Resolved]
  - Schizoaffective disorder [Unknown]
